FAERS Safety Report 10753860 (Version 2)
Quarter: 2015Q1

REPORT INFORMATION
  Report Type: Spontaneous
  Country: TR (occurrence: None)
  Receive Date: 20150129
  Receipt Date: 20150202
  Transmission Date: 20150721
  Serious: Yes (Other)
  Sender: FDA-Public Use
  Company Number: TR-2015VAL000052

PATIENT
  Age: 26 Year
  Sex: Female

DRUGS (1)
  1. CARBAMAZEPINE (CARBAMAZEPINE) UNKNOWN [Suspect]
     Active Substance: CARBAMAZEPINE
     Indication: EPILEPSY

REACTIONS (7)
  - Femoral neck fracture [None]
  - Stress fracture [None]
  - Osteoporosis [None]
  - Groin pain [None]
  - Seizure [None]
  - Abasia [None]
  - Pathological fracture [None]
